FAERS Safety Report 5273008-4 (Version None)
Quarter: 2007Q1

REPORT INFORMATION
  Report Type: 
  Country: None (occurrence: None)
  Receive Date: 20070322
  Receipt Date: 20070312
  Transmission Date: 20070707
  Serious: Yes (Death)
  Sender: FDA-Public Use
  Company Number: CH-PFIZER INC-2007018853

PATIENT
  Age: 61 Year
  Sex: Male

DRUGS (5)
  1. NEURONTIN [Suspect]
     Route: 048
     Dates: start: 20061130, end: 20061130
  2. TRAMAL - SLOW RELEASE [Suspect]
     Route: 048
     Dates: start: 20061130, end: 20061130
  3. ECOFENAC [Concomitant]
     Route: 048
  4. DAFALGAN [Concomitant]
     Route: 048
  5. TRAMADOL HCL [Concomitant]
     Route: 048

REACTIONS (1)
  - DEATH [None]
